FAERS Safety Report 6673574-8 (Version None)
Quarter: 2010Q2

REPORT INFORMATION
  Report Type: 
  Country: None (occurrence: None)
  Receive Date: 20100408
  Receipt Date: 20100326
  Transmission Date: 20101027
  Serious: Yes (Hospitalization, Other)
  Sender: FDA-Public Use
  Company Number: US-PFIZER INC-2010026288

PATIENT
  Age: 3 Year
  Sex: Female
  Weight: 14.6 kg

DRUGS (7)
  1. PF-02341066 [Suspect]
     Indication: NEUROBLASTOMA
     Dosage: 165 MG/M2, 2X/DAY
     Dates: start: 20100211, end: 20100302
  2. NEURONTIN [Suspect]
     Dosage: 50 MG, 3X/DAY
     Route: 048
     Dates: start: 20091203
  3. BACTRIM [Suspect]
     Dosage: 5 ML, 2X/DAY ON 3 CONSECUTIVE DAYS/WEEK
     Route: 048
     Dates: start: 20090301
  4. EMLA [Concomitant]
     Dosage: UNK
     Route: 061
     Dates: start: 20090301
  5. LACTULOSE [Concomitant]
     Dosage: UNK
     Route: 048
     Dates: start: 20100218
  6. MORPHINE [Concomitant]
     Dosage: UNK
     Route: 048
     Dates: start: 20100208
  7. ZOFRAN [Concomitant]
     Dosage: UNK
     Route: 048
     Dates: start: 20090301

REACTIONS (2)
  - NEUTROPENIA [None]
  - PAIN IN EXTREMITY [None]
